FAERS Safety Report 18637987 (Version 1)
Quarter: 2020Q4

REPORT INFORMATION
  Report Type: Spontaneous
  Country: US (occurrence: US)
  Receive Date: 20201218
  Receipt Date: 20201218
  Transmission Date: 20210114
  Serious: No
  Sender: FDA-Public Use
  Company Number: US-REGENERON PHARMACEUTICALS, INC.-2020-18437

PATIENT

DRUGS (1)
  1. EYLEA [Suspect]
     Active Substance: AFLIBERCEPT
     Indication: NEOVASCULAR AGE-RELATED MACULAR DEGENERATION
     Dosage: 2 MG, UNK
     Route: 031
     Dates: start: 201901

REACTIONS (5)
  - Corneal oedema [Recovered/Resolved]
  - Injection site pain [Recovered/Resolved]
  - Anterior chamber cell [Recovered/Resolved]
  - Visual impairment [Recovered/Resolved]
  - Vitreous disorder [Recovered/Resolved]
